FAERS Safety Report 7257068-7 (Version None)
Quarter: 2011Q1

REPORT INFORMATION
  Report Type: 
  Country: None (occurrence: None)
  Receive Date: 20110129
  Receipt Date: 20100817
  Transmission Date: 20110831
  Serious: Yes (Hospitalization)
  Sender: FDA-Public Use
  Company Number: US-ABBOTT-10P-163-0664406-00

PATIENT
  Age: 38 Year
  Sex: Female

DRUGS (9)
  1. ALUBERTOL [Concomitant]
  2. CLINDAMYCIN [Concomitant]
     Dosage: ONE APPLICATION EVERY OTHER DAY
     Route: 067
  3. VALTREX GENERIC [Concomitant]
  4. SULFAZINE [Concomitant]
     Dosage: 500MG - THREE PILLS DAILY
  5. ADVAIR [Concomitant]
     Dosage: 250-50, ONE PUFF ONCE DAILY
  6. FULOCINODINE [Concomitant]
     Indication: ECZEMA
  7. HUMIRA [Suspect]
     Indication: CROHN'S DISEASE
     Dates: start: 20100301
  8. OMEPRAZOLE [Concomitant]
  9. ORTHO [Concomitant]
     Dosage: BIRTH CONTROL PATCH

REACTIONS (4)
  - PNEUMONIA [None]
  - INJECTION SITE HAEMATOMA [None]
  - INJECTION SITE NODULE [None]
  - INJECTION SITE HAEMORRHAGE [None]
